FAERS Safety Report 12486933 (Version 1)
Quarter: 2016Q2

REPORT INFORMATION
  Report Type: Spontaneous
  Country: GB (occurrence: None)
  Receive Date: 20160620
  Receipt Date: 20160620
  Transmission Date: 20160815
  Serious: Yes (Other)
  Sender: FDA-Public Use
  Company Number: GB2016K2778SPO

PATIENT
  Age: 57 Year
  Sex: Female
  Weight: 62 kg

DRUGS (4)
  1. BIOXTRA [Concomitant]
  2. LEVOTHYROXINE. [Concomitant]
     Active Substance: LEVOTHYROXINE
  3. LANSOPRAZOLE WORLD (LANSOPRAZOLE) UNKNOWN [Suspect]
     Active Substance: LANSOPRAZOLE
     Indication: GASTROOESOPHAGEAL REFLUX DISEASE
     Route: 048
     Dates: start: 20160305, end: 20160422
  4. CALCIUM AND VITAMIN D (CALCIUM LACTATE, CALCIUM PHOSPHATE, ERGOCALCIFEROL, VITAMIN D SUBSTANCES) [Concomitant]

REACTIONS (10)
  - Muscle twitching [None]
  - Nervous system disorder [None]
  - Drooling [None]
  - Tardive dyskinesia [None]
  - Oral pain [None]
  - Speech disorder [None]
  - Dysphagia [None]
  - Mastication disorder [None]
  - Drug withdrawal syndrome [None]
  - Neck pain [None]

NARRATIVE: CASE EVENT DATE: 20160428
